FAERS Safety Report 8145513-4 (Version None)
Quarter: 2012Q1

REPORT INFORMATION
  Report Type: 
  Country: None (occurrence: None)
  Receive Date: 20120217
  Receipt Date: 20110303
  Transmission Date: 20120608
  Serious: No
  Sender: FDA-Public Use
  Company Number: US-ABBOTT-11P-163-0709248-00

PATIENT
  Sex: Female

DRUGS (5)
  1. VITAMIN D [Concomitant]
     Indication: PRODUCT USED FOR UNKNOWN INDICATION
  2. SIMCOR [Suspect]
     Indication: PRODUCT USED FOR UNKNOWN INDICATION
  3. ISTALOL [Concomitant]
     Indication: GLAUCOMA
  4. METOPROLOL TARTRATE [Concomitant]
     Indication: BLOOD PRESSURE
  5. FISH OIL [Concomitant]
     Indication: PRODUCT USED FOR UNKNOWN INDICATION

REACTIONS (5)
  - EYELID OEDEMA [None]
  - ERYTHEMA OF EYELID [None]
  - FLUSHING [None]
  - PRURITUS [None]
  - EYELIDS PRURITUS [None]
